FAERS Safety Report 7109967-4 (Version None)
Quarter: 2010Q4

REPORT INFORMATION
  Report Type: 
  Country: None (occurrence: None)
  Receive Date: 20101118
  Receipt Date: 20100902
  Transmission Date: 20110411
  Serious: Yes (Hospitalization, Other)
  Sender: FDA-Public Use
  Company Number: US-BAYER-201026769NA

PATIENT
  Age: 31 Year
  Sex: Female
  Weight: 120 kg

DRUGS (6)
  1. YASMIN [Suspect]
     Indication: CONTRACEPTION
     Route: 048
     Dates: start: 20020501, end: 20080801
  2. OCELLA [Suspect]
     Indication: CONTRACEPTION
     Route: 048
     Dates: start: 20080801, end: 20090601
  3. IBUPROFEN [Concomitant]
     Indication: PRODUCT USED FOR UNKNOWN INDICATION
     Route: 065
     Dates: start: 20040101
  4. GOODY POWDER [Concomitant]
     Indication: PRODUCT USED FOR UNKNOWN INDICATION
     Route: 065
     Dates: start: 20000101
  5. AMOXICILLIN [Concomitant]
     Indication: PRODUCT USED FOR UNKNOWN INDICATION
     Dosage: AMOXICILLIN (VARIOUS)
     Route: 065
  6. TYLENOL [Concomitant]
     Indication: PRODUCT USED FOR UNKNOWN INDICATION
     Route: 065
     Dates: start: 20010101

REACTIONS (1)
  - CHOLECYSTECTOMY [None]
